FAERS Safety Report 7431874-8 (Version None)
Quarter: 2011Q2

REPORT INFORMATION
  Report Type: 
  Country: None (occurrence: None)
  Receive Date: 20110422
  Receipt Date: 20110420
  Transmission Date: 20111010
  Serious: Yes (Other)
  Sender: FDA-Public Use
  Company Number: DE-PFIZER INC-2011086234

PATIENT
  Sex: Female

DRUGS (1)
  1. SORTIS [Suspect]
     Indication: PRODUCT USED FOR UNKNOWN INDICATION
     Dosage: 40 MG, UNK

REACTIONS (4)
  - DYSPNOEA [None]
  - SWELLING [None]
  - VOMITING [None]
  - NAUSEA [None]
